FAERS Safety Report 6534044-0 (Version None)
Quarter: 2010Q1

REPORT INFORMATION
  Report Type: 
  Country: None (occurrence: None)
  Receive Date: 20100112
  Receipt Date: 20100104
  Transmission Date: 20100710
  Serious: Yes (Other)
  Sender: FDA-Public Use
  Company Number: US-JNJFOC-20100101353

PATIENT
  Age: 48 Year
  Sex: Female
  Weight: 60.33 kg

DRUGS (5)
  1. LEVAQUIN [Suspect]
     Indication: POST PROCEDURAL INFECTION
     Route: 048
  2. CELEBREX [Suspect]
     Indication: ARTHRALGIA
     Route: 048
  3. ASPIRIN [Concomitant]
     Indication: PROPHYLAXIS
     Route: 048
  4. ASPIRIN [Concomitant]
     Indication: PAIN
     Route: 048
  5. HYDROCODONE [Concomitant]
     Indication: PAIN
     Route: 048

REACTIONS (6)
  - GAIT DISTURBANCE [None]
  - HEADACHE [None]
  - NIGHTMARE [None]
  - SENSORY DISTURBANCE [None]
  - SUICIDAL IDEATION [None]
  - VIOLENCE-RELATED SYMPTOM [None]
